FAERS Safety Report 8558821-X (Version None)
Quarter: 2012Q3

REPORT INFORMATION
  Report Type: 
  Country: None (occurrence: None)
  Receive Date: 20120801
  Receipt Date: 20120725
  Transmission Date: 20120928
  Serious: Yes (Other)
  Sender: FDA-Public Use
  Company Number: US-RB-042890-12

PATIENT
  Age: 26 Year
  Sex: Female

DRUGS (3)
  1. BIOTIN [Concomitant]
     Indication: MEDICAL DIET
     Route: 065
     Dates: start: 20110301
  2. ZOLOFT [Concomitant]
     Indication: POSTPARTUM DEPRESSION
     Route: 065
     Dates: start: 20111101
  3. BUPRENORPHINE [Suspect]
     Indication: DRUG DEPENDENCE
     Dosage: UNIT DOSE UNKNOWN
     Route: 060
     Dates: start: 20111102

REACTIONS (2)
  - MATERNAL EXPOSURE DURING PREGNANCY [None]
  - ABORTION INDUCED [None]
